FAERS Safety Report 25833489 (Version 1)
Quarter: 2025Q3

REPORT INFORMATION
  Report Type: Spontaneous
  Country: US (occurrence: US)
  Receive Date: 20250922
  Receipt Date: 20250922
  Transmission Date: 20251021
  Serious: No
  Sender: SANOFI AVENTIS
  Company Number: US-SA-2025SA280966

PATIENT
  Age: 68 Year
  Sex: Female
  Weight: 86.168 kg

DRUGS (13)
  1. DUPIXENT [Suspect]
     Active Substance: DUPILUMAB
     Indication: Pemphigoid
     Route: 058
     Dates: start: 20250911, end: 20250911
  2. ROSUVASTATIN CALCIUM [Concomitant]
     Active Substance: ROSUVASTATIN CALCIUM
  3. FLAXSEED [Concomitant]
     Active Substance: FLAX SEED
  4. FISH OIL [Concomitant]
     Active Substance: FISH OIL
  5. ASPIRIN [Concomitant]
     Active Substance: ASPIRIN
  6. PRILOSEC OTC [Concomitant]
     Active Substance: OMEPRAZOLE MAGNESIUM
  7. TORSEMIDE [Concomitant]
     Active Substance: TORSEMIDE
  8. AMLODIPINE BESYLATE [Concomitant]
     Active Substance: AMLODIPINE BESYLATE
  9. FENOFIBRATE [Concomitant]
     Active Substance: FENOFIBRATE
  10. LOSARTAN POTASSIUM [Concomitant]
     Active Substance: LOSARTAN POTASSIUM
  11. OXYCODONE HYDROCHLORIDE [Concomitant]
     Active Substance: OXYCODONE HYDROCHLORIDE
  12. OZEMPIC [Concomitant]
     Active Substance: SEMAGLUTIDE
  13. BETAMETHASONE DIPROPIONATE AUGMENTED [Concomitant]
     Active Substance: BETAMETHASONE DIPROPIONATE

REACTIONS (2)
  - Abdominal discomfort [Not Recovered/Not Resolved]
  - Nausea [Not Recovered/Not Resolved]

NARRATIVE: CASE EVENT DATE: 20250901
